FAERS Safety Report 14235235 (Version 2)
Quarter: 2017Q4

REPORT INFORMATION
  Report Type: Report from Study
  Country: US (occurrence: US)
  Receive Date: 20171129
  Receipt Date: 20171211
  Transmission Date: 20180321
  Serious: Yes (Hospitalization, Other)
  Sender: FDA-Public Use
  Company Number: US-009507513-1709USA013962

PATIENT
  Age: 62 Year
  Sex: Male

DRUGS (2)
  1. PEMBROLIZUMAB. [Suspect]
     Active Substance: PEMBROLIZUMAB
     Indication: MALIGNANT MELANOMA
     Dosage: UNK, Q3W/ STRENGTH: 100MG
     Route: 042
     Dates: start: 201706, end: 2017
  2. PEMBROLIZUMAB. [Suspect]
     Active Substance: PEMBROLIZUMAB
     Dosage: UNK, Q3W/ DOSING ACCORDING TO HIS WEIGHT
     Route: 042
     Dates: start: 2017

REACTIONS (14)
  - Gingival disorder [Recovered/Resolved]
  - Weight fluctuation [Unknown]
  - Pulmonary mass [Unknown]
  - Sinus pain [Unknown]
  - Inappropriate schedule of drug administration [Unknown]
  - Throat irritation [Not Recovered/Not Resolved]
  - Infection [Unknown]
  - Fatigue [Recovered/Resolved]
  - Adverse event [Unknown]
  - Allergy to plants [Unknown]
  - Chronic obstructive pulmonary disease [Recovering/Resolving]
  - Skin neoplasm excision [Unknown]
  - Gingival pain [Unknown]
  - Asthenia [Recovering/Resolving]

NARRATIVE: CASE EVENT DATE: 2017
